FAERS Safety Report 4855471-3 (Version None)
Quarter: 2005Q4

REPORT INFORMATION
  Report Type: 
  Country: None (occurrence: None)
  Receive Date: 20051216
  Receipt Date: 20051208
  Transmission Date: 20060501
  Serious: Yes (Death, Life-Threatening, Hospitalization)
  Sender: FDA-Public Use
  Company Number: AU-BOEHRINGER INGELHEIM PHARMACEUTICALS, INC.-2005-BP-21120AU

PATIENT
  Sex: Female
  Weight: 110 kg

DRUGS (7)
  1. MOBIC [Suspect]
     Route: 048
  2. AVAPRO [Suspect]
     Route: 048
  3. METFORMIN HYDROCHLORIDE [Suspect]
     Route: 048
  4. OMEPRAZOLE [Suspect]
     Route: 048
  5. COVERSYL PLUS [Suspect]
     Route: 048
  6. GLIMEPIRIDE [Suspect]
     Route: 048
  7. METOPROLOL TARTRATE [Suspect]
     Route: 048

REACTIONS (10)
  - ABDOMINAL PAIN [None]
  - ACIDOSIS [None]
  - CIRCULATORY COLLAPSE [None]
  - HYPERKALAEMIA [None]
  - HYPERVENTILATION [None]
  - LEUKOCYTOSIS [None]
  - MALAISE [None]
  - NAUSEA [None]
  - RENAL FAILURE [None]
  - VOMITING [None]
